FAERS Safety Report 25180905 (Version 2)
Quarter: 2025Q2

REPORT INFORMATION
  Report Type: Report from Study
  Country: ES (occurrence: ES)
  Receive Date: 20250409
  Receipt Date: 20250414
  Transmission Date: 20250716
  Serious: No
  Sender: ABBVIE
  Company Number: ES-ABBVIE-6214799

PATIENT
  Age: 52 Year
  Sex: Female

DRUGS (2)
  1. FOSCARBIDOPA\FOSLEVODOPA [Suspect]
     Active Substance: FOSCARBIDOPA\FOSLEVODOPA
     Indication: Parkinson^s disease
     Route: 058
     Dates: start: 20250311
  2. FOSCARBIDOPA\FOSLEVODOPA [Suspect]
     Active Substance: FOSCARBIDOPA\FOSLEVODOPA
     Route: 058

REACTIONS (4)
  - Infusion site infection [Recovering/Resolving]
  - Infusion site pain [Recovering/Resolving]
  - Infusion site induration [Recovering/Resolving]
  - Infusion site nodule [Recovered/Resolved]

NARRATIVE: CASE EVENT DATE: 20250301
